FAERS Safety Report 5584373-2 (Version None)
Quarter: 2008Q1

REPORT INFORMATION
  Report Type: 
  Country: None (occurrence: None)
  Receive Date: 20080108
  Receipt Date: 20071031
  Transmission Date: 20080703
  Serious: No
  Sender: FDA-Public Use
  Company Number: US-BAYER-200713589BCC

PATIENT
  Age: 84 Year
  Sex: Male
  Weight: 92 kg

DRUGS (3)
  1. ALEVE [Suspect]
     Indication: PAIN
     Dosage: UNIT DOSE: 220 MG
     Route: 048
     Dates: start: 20071031
  2. VICODIN [Concomitant]
  3. TYLENOL [Concomitant]

REACTIONS (1)
  - ARTHRALGIA [None]
